FAERS Safety Report 6729901-6 (Version None)
Quarter: 2010Q2

REPORT INFORMATION
  Report Type: 
  Country: None (occurrence: None)
  Receive Date: 20100518
  Receipt Date: 20100505
  Transmission Date: 20101027
  Serious: Yes (Other)
  Sender: FDA-Public Use
  Company Number: PHHY2010DE29508

PATIENT
  Sex: Male

DRUGS (1)
  1. EXJADE [Suspect]
     Dosage: 20 MG/KG, UNK
     Route: 048
     Dates: start: 20090901, end: 20100401

REACTIONS (2)
  - EXTREMITY NECROSIS [None]
  - SKIN ULCER [None]
